FAERS Safety Report 6473848-X (Version None)
Quarter: 2009Q4

REPORT INFORMATION
  Report Type: 
  Country: None (occurrence: None)
  Receive Date: 20091130
  Receipt Date: 20091110
  Transmission Date: 20100525
  Serious: Yes (Hospitalization, Other)
  Sender: FDA-Public Use
  Company Number: 2009AP004528

PATIENT
  Age: 40 Year
  Sex: Female

DRUGS (8)
  1. CITALOPRAM HYDROBROMIDE [Suspect]
     Indication: DEPRESSED MOOD
     Dosage: 40 MG;PO
     Route: 048
  2. OMEPRAZOLE [Suspect]
     Indication: COLITIS ULCERATIVE
     Dosage: 20 MG
  3. AMITRIPTYLINE HYDROCHLORIDE [Suspect]
     Indication: MOOD ALTERED
  4. CLOZARIL [Suspect]
     Indication: SCHIZOPHRENIA
     Dosage: PO
     Route: 048
     Dates: start: 20000805, end: 20090914
  5. LITHIUM CARBONATE [Suspect]
     Indication: AFFECTIVE DISORDER
     Dosage: 800 MG;PO
     Route: 047
  6. AMITRIPTYLINE HYDROCHLORIDE [Concomitant]
  7. BALSALAZIDE (BALSALAZIDE) [Concomitant]
  8. OMEPRAZOLE [Concomitant]

REACTIONS (5)
  - DIARRHOEA [None]
  - DRUG DOSE OMISSION [None]
  - INTESTINAL OBSTRUCTION [None]
  - PLATELET COUNT INCREASED [None]
  - PULMONARY THROMBOSIS [None]
